FAERS Safety Report 23679241 (Version 1)
Quarter: 2024Q1

REPORT INFORMATION
  Report Type: Spontaneous
  Country: US (occurrence: None)
  Receive Date: 20240327
  Receipt Date: 20240327
  Transmission Date: 20240409
  Serious: Yes (Hospitalization)
  Sender: FDA-Public Use
  Company Number: None

PATIENT
  Age: 63 Year
  Sex: Female

DRUGS (2)
  1. CAPECITABINE [Suspect]
     Active Substance: CAPECITABINE
     Indication: Neuroendocrine tumour
     Dosage: FREQUENCY : TWICE A DAY;?
  2. CAPECITABINE [Concomitant]
     Active Substance: CAPECITABINE
     Dosage: FREQUENCY : TWICE A DAY;?

REACTIONS (3)
  - Cerebrovascular accident [None]
  - Asthenia [None]
  - Nausea [None]
